FAERS Safety Report 5618530-3 (Version None)
Quarter: 2008Q1

REPORT INFORMATION
  Report Type: 
  Country: None (occurrence: None)
  Receive Date: 20080207
  Receipt Date: 20080128
  Transmission Date: 20080703
  Serious: Yes (Hospitalization)
  Sender: FDA-Public Use
  Company Number: AT-ELI_LILLY_AND_COMPANY-AT200801006461

PATIENT
  Age: 14 Year
  Sex: Female

DRUGS (18)
  1. ZYPREXA [Suspect]
     Indication: POST-TRAUMATIC STRESS DISORDER
     Dosage: 5 MG, DAILY (1/D)
     Dates: start: 20071112, end: 20071112
  2. ZYPREXA [Suspect]
     Dosage: 17.5 MG, DAILY (1/D)
     Dates: start: 20071113, end: 20071113
  3. ZYPREXA [Suspect]
     Dosage: 12.5 MG, DAILY (1/D)
     Dates: start: 20071114, end: 20071118
  4. ZYPREXA [Suspect]
     Dosage: 20 MG, DAILY (1/D)
     Dates: start: 20071119, end: 20071119
  5. ZYPREXA [Suspect]
     Dosage: 5 MG, EACH MORNING
     Dates: start: 20071120
  6. ZYPREXA [Suspect]
     Dosage: 10 MG, EACH EVENING
     Dates: start: 20071120
  7. CONVULEX [Concomitant]
     Dosage: UNK UNK,
     Dates: start: 20071117, end: 20071117
  8. CONVULEX [Concomitant]
     Dosage: 900 MG, UNKNOWN
     Dates: start: 20071118, end: 20071118
  9. DEPAKENE [Concomitant]
     Dosage: 1000 MG, UNKNOWN
     Dates: start: 20071119, end: 20071120
  10. DEPAKENE [Concomitant]
     Dosage: 500 MG, UNKNOWN
     Dates: start: 20071121, end: 20071121
  11. CLONAZEPAM [Concomitant]
     Dosage: 7 MG, UNKNOWN
     Dates: start: 20071111, end: 20071118
  12. CLONAZEPAM [Concomitant]
     Dosage: 4 MG, UNKNOWN
     Dates: start: 20071119, end: 20071119
  13. TEMESTA [Concomitant]
     Dosage: 5 MG, UNKNOWN
     Dates: start: 20071111, end: 20071111
  14. TEMESTA [Concomitant]
     Dosage: 7.5 MG, UNKNOWN
     Dates: start: 20071112, end: 20071115
  15. TEMESTA [Concomitant]
     Dosage: 5 MG, UNKNOWN
     Dates: start: 20071120, end: 20071120
  16. TEMESTA [Concomitant]
     Dosage: 7.5 MG, UNKNOWN
     Dates: start: 20071121, end: 20071121
  17. NEXIUM [Concomitant]
     Dosage: 20 MG, EACH MORNING
     Dates: start: 20071119
  18. FRAXIPARIN [Concomitant]
     Dosage: 0.4 ML, DAILY (1/D)
     Route: 058
     Dates: start: 20071114, end: 20071119

REACTIONS (4)
  - AGITATION [None]
  - IMPULSIVE BEHAVIOUR [None]
  - LEUKOPENIA [None]
  - SUICIDAL IDEATION [None]
